FAERS Safety Report 13010158 (Version 1)
Quarter: 2016Q4

REPORT INFORMATION
  Report Type: Spontaneous
  Country: US (occurrence: US)
  Receive Date: 20161206
  Receipt Date: 20161206
  Transmission Date: 20170207
  Serious: No
  Sender: FDA-Public Use
  Company Number: None

PATIENT
  Age: 65 Year
  Sex: Male

DRUGS (7)
  1. TRAZODONE [Concomitant]
     Active Substance: TRAZODONE HYDROCHLORIDE
  2. GLIMEPIRIDE. [Concomitant]
     Active Substance: GLIMEPIRIDE
  3. SUTENT [Suspect]
     Active Substance: SUNITINIB MALATE
     Indication: PANCREATIC CARCINOMA
     Dosage: SUTENT 37.5MG CAP - ONE CAP - PO - QD, DAYS 1-14
     Route: 048
     Dates: start: 20160505
  4. ALPRAZOLAM. [Concomitant]
     Active Substance: ALPRAZOLAM
  5. LISOP/HCTZ [Concomitant]
  6. SUTENT [Suspect]
     Active Substance: SUNITINIB MALATE
     Indication: RENAL CANCER
     Dosage: SUTENT 37.5MG CAP - ONE CAP - PO - QD, DAYS 1-14
     Route: 048
     Dates: start: 20160505
  7. ZOLPIDEM [Concomitant]
     Active Substance: ZOLPIDEM\ZOLPIDEM TARTRATE

REACTIONS (4)
  - Fall [None]
  - Arthropathy [None]
  - Asthenia [None]
  - Metastases to bone [None]

NARRATIVE: CASE EVENT DATE: 20161126
